FAERS Safety Report 7115268-0 (Version None)
Quarter: 2010Q4

REPORT INFORMATION
  Report Type: 
  Country: None (occurrence: None)
  Receive Date: 20101122
  Receipt Date: 20101109
  Transmission Date: 20110411
  Serious: Yes (Other)
  Sender: FDA-Public Use
  Company Number: PT-JNJFOC-20101105241

PATIENT
  Age: 77 Year
  Sex: Male
  Weight: 58 kg

DRUGS (8)
  1. LEVOFLOXACIN [Suspect]
     Indication: PNEUMONIA
     Route: 065
  2. ACETAMINOPHEN [Suspect]
     Route: 065
  3. ACETAMINOPHEN [Suspect]
     Indication: BODY TEMPERATURE INCREASED
     Route: 065
  4. SALMETEROL+FLUTICASONE [Concomitant]
     Dosage: SALMETEROL 50 UG PLUS FLUTICASONE 250 UG
     Route: 065
  5. AMLODIPINE [Concomitant]
     Route: 065
  6. SIMVASTATIN [Concomitant]
     Route: 065
  7. ALFUZOSIN [Concomitant]
     Route: 065
  8. FINASTERIDE [Concomitant]
     Route: 065

REACTIONS (2)
  - ANAEMIA [None]
  - HEPATITIS ACUTE [None]
